FAERS Safety Report 22269287 (Version 4)
Quarter: 2023Q2

REPORT INFORMATION
  Report Type: Report from Study
  Country: US (occurrence: US)
  Receive Date: 20230501
  Receipt Date: 20230623
  Transmission Date: 20230721
  Serious: No
  Sender: FDA-Public Use
  Company Number: US-002147023-NVSC2023US096138

PATIENT
  Sex: Male

DRUGS (1)
  1. ENTRESTO [Suspect]
     Active Substance: SACUBITRIL\VALSARTAN
     Indication: Product used for unknown indication
     Dosage: 1 DOSAGE FORM, BID (50 MG)
     Route: 048
     Dates: start: 202301

REACTIONS (7)
  - Ejection fraction decreased [Unknown]
  - Bundle branch block left [Unknown]
  - Bundle branch block right [Unknown]
  - Throat tightness [Unknown]
  - Exposure to toxic agent [Unknown]
  - Cough [Unknown]
  - Fatigue [Recovering/Resolving]
